FAERS Safety Report 5300526-2 (Version None)
Quarter: 2007Q2

REPORT INFORMATION
  Report Type: 
  Country: None (occurrence: None)
  Receive Date: 20070413
  Receipt Date: 20070413
  Transmission Date: 20071010
  Serious: Yes (Life-Threatening, Disabling)
  Sender: FDA-Public Use
  Company Number: None

PATIENT
  Age: 67 Year
  Sex: Female
  Weight: 76 kg

DRUGS (1)
  1. TRAMADOL HCL [Suspect]
     Indication: PANCREATITIS
     Dates: start: 20070403, end: 20070403

REACTIONS (6)
  - CARDIAC DISORDER [None]
  - DRUG HYPERSENSITIVITY [None]
  - DYSPNOEA [None]
  - OEDEMA PERIPHERAL [None]
  - PANCREATITIS [None]
  - TACHYCARDIA [None]
